FAERS Safety Report 14717095 (Version 1)
Quarter: 2018Q2

REPORT INFORMATION
  Report Type: Report from Study
  Country: US (occurrence: US)
  Receive Date: 20180404
  Receipt Date: 20180404
  Transmission Date: 20180711
  Serious: No
  Sender: FDA-Public Use
  Company Number: US-AMGEN-USASL2017148791

PATIENT
  Age: 64 Year
  Sex: Female
  Weight: 53.97 kg

DRUGS (5)
  1. PROLIA [Suspect]
     Active Substance: DENOSUMAB
     Indication: OSTEOPOROSIS
     Dosage: 60 MG, Q6MO
     Route: 058
  2. VITAMIN D3 [Concomitant]
     Active Substance: CHOLECALCIFEROL
     Dosage: UNK
  3. ESTRACE [Concomitant]
     Active Substance: ESTRADIOL
     Dosage: 0.1 MG, UNK
  4. PROLIA [Suspect]
     Active Substance: DENOSUMAB
     Indication: LUMBAR VERTEBRAL FRACTURE
     Dosage: 60 MG, Q6MO
     Route: 058
     Dates: start: 20170228
  5. VAGI [Concomitant]
     Route: 061

REACTIONS (1)
  - Off label use [Unknown]
